FAERS Safety Report 9154472 (Version 1)
Quarter: 2013Q1

REPORT INFORMATION
  Report Type: Spontaneous
  Country: US (occurrence: US)
  Receive Date: 20130311
  Receipt Date: 20130311
  Transmission Date: 20140127
  Serious: No
  Sender: FDA-Public Use
  Company Number: US-ABBOTT-12P-163-0921465-00

PATIENT
  Sex: Male
  Weight: 61.29 kg

DRUGS (3)
  1. LUPRON DEPOT 11.25 MG [Suspect]
     Indication: PROSTATE CANCER
  2. LUPRON DEPOT 11.25 MG [Suspect]
  3. LUPRON DEPOT 11.25 MG [Suspect]
     Dates: start: 201201

REACTIONS (2)
  - Pain in extremity [Not Recovered/Not Resolved]
  - Hypoaesthesia [Not Recovered/Not Resolved]
